FAERS Safety Report 21928833 (Version 1)
Quarter: 2023Q1

REPORT INFORMATION
  Report Type: Other
  Country: CZ (occurrence: CZ)
  Receive Date: 20230131
  Receipt Date: 20230131
  Transmission Date: 20230418
  Serious: Yes (Other)
  Sender: FDA-Public Use
  Company Number: CZ-MYLANLABS-2022M1147476

PATIENT
  Sex: Male

DRUGS (9)
  1. BEVACIZUMAB [Suspect]
     Active Substance: BEVACIZUMAB
     Indication: Colorectal cancer metastatic
     Dosage: UNK
     Route: 065
     Dates: start: 202007
  2. BEVACIZUMAB [Suspect]
     Active Substance: BEVACIZUMAB
     Dosage: 4 CYCLES
     Route: 065
  3. LEUCOVORIN [Suspect]
     Active Substance: LEUCOVORIN
     Indication: Colorectal cancer metastatic
     Dosage: UNK (PART OF FOLFIRI THERAPY)
     Route: 065
     Dates: start: 202007
  4. LEUCOVORIN [Suspect]
     Active Substance: LEUCOVORIN
     Dosage: (PART OF FOLFOX THERAPY)?7 CYCLES
     Route: 065
     Dates: start: 201903, end: 201907
  5. FLUOROURACIL [Suspect]
     Active Substance: FLUOROURACIL
     Indication: Colorectal cancer metastatic
     Dosage: (PART OF FOLFOX THERAPY)?7 CYCLES
     Route: 065
     Dates: start: 201903, end: 201907
  6. FLUOROURACIL [Suspect]
     Active Substance: FLUOROURACIL
     Dosage: UNK (PART OF FOLFOX THERAPY)
     Route: 065
     Dates: start: 202007
  7. IRINOTECAN [Suspect]
     Active Substance: IRINOTECAN
     Indication: Colorectal cancer metastatic
     Dosage: UNK (PART OF FOLFIRI THERAPY)
     Route: 065
     Dates: start: 202007
  8. IRINOTECAN [Suspect]
     Active Substance: IRINOTECAN
     Dosage: 4 CYCLES
     Route: 065
  9. OXALIPLATIN [Suspect]
     Active Substance: OXALIPLATIN
     Indication: Colorectal cancer metastatic
     Dosage: (PART OF FOLFOX THERAPY)?7 CYCLES
     Route: 065
     Dates: start: 201903, end: 201907

REACTIONS (2)
  - Diarrhoea [Unknown]
  - Haematotoxicity [Unknown]

NARRATIVE: CASE EVENT DATE: 20200101
